FAERS Safety Report 5610923-3 (Version None)
Quarter: 2008Q1

REPORT INFORMATION
  Report Type: 
  Country: None (occurrence: None)
  Receive Date: 20080128
  Receipt Date: 20080116
  Transmission Date: 20080703
  Serious: Yes (Hospitalization)
  Sender: FDA-Public Use
  Company Number: US017348

PATIENT
  Age: 53 Year
  Sex: Male
  Weight: 124.2856 kg

DRUGS (4)
  1. ACTIQ [Suspect]
     Indication: MUSCLE ATROPHY
     Dosage: 1600 UG QD BUCCAL
     Route: 002
     Dates: start: 20000101
  2. ACTIQ [Suspect]
     Indication: MUSCLE ATROPHY
     Dosage: 800 UG BUCCAL
     Route: 002
  3. VICODIN [Suspect]
     Dates: start: 20060411
  4. DURAGESIC. MFR: ALZA CORPORATION [Concomitant]

REACTIONS (9)
  - ABSCESS [None]
  - AGGRESSION [None]
  - ANGER [None]
  - COMA [None]
  - DELUSION [None]
  - DRUG WITHDRAWAL SYNDROME [None]
  - HALLUCINATION [None]
  - INSOMNIA [None]
  - PAIN [None]
